FAERS Safety Report 24395336 (Version 2)
Quarter: 2024Q4

REPORT INFORMATION
  Report Type: Report from Study
  Country: CA (occurrence: CA)
  Receive Date: 20241004
  Receipt Date: 20241014
  Transmission Date: 20250114
  Serious: Yes (Other)
  Sender: ROCHE
  Company Number: CA-002147023-NVSC2023CA247507

PATIENT
  Age: 53 Year
  Sex: Female

DRUGS (11)
  1. XOLAIR [Suspect]
     Active Substance: OMALIZUMAB
     Indication: Chronic spontaneous urticaria
     Route: 050
     Dates: start: 20231117
  2. XOLAIR [Suspect]
     Active Substance: OMALIZUMAB
     Dosage: 300 MG, EVERY 4 WEEKS
     Route: 050
  3. XOLAIR [Suspect]
     Active Substance: OMALIZUMAB
     Dosage: UNK
     Route: 065
  4. XOLAIR [Suspect]
     Active Substance: OMALIZUMAB
     Dosage: 300 MG, EVERY FOUR WEEKS
     Route: 050
     Dates: start: 20241004
  5. XOLAIR [Suspect]
     Active Substance: OMALIZUMAB
     Dosage: UNK
     Route: 058
     Dates: start: 20240119
  6. XOLAIR [Suspect]
     Active Substance: OMALIZUMAB
     Dosage: 300 MG, Q3W
     Route: 050
  7. XOLAIR [Suspect]
     Active Substance: OMALIZUMAB
     Dosage: 450 MG, Q3W
     Route: 050
  8. XOLAIR [Suspect]
     Active Substance: OMALIZUMAB
     Dosage: 300 MG, Q3W
     Route: 050
  9. XOLAIR [Suspect]
     Active Substance: OMALIZUMAB
     Dosage: 450 MG, Q3W
     Route: 050
     Dates: start: 20240731
  10. XOLAIR [Suspect]
     Active Substance: OMALIZUMAB
     Dosage: 300 MG, Q4W
     Route: 065
  11. BILASTINE [Concomitant]
     Active Substance: BILASTINE
     Indication: Product used for unknown indication
     Dosage: 1 DOSAGE FORM, BID
     Route: 050
     Dates: start: 20230908

REACTIONS (12)
  - Angina pectoris [Recovered/Resolved]
  - Paraesthesia [Unknown]
  - Erythema [Unknown]
  - Ear pruritus [Unknown]
  - Pruritus [Unknown]
  - Nausea [Unknown]
  - Stress [Unknown]
  - Skin plaque [Recovered/Resolved]
  - Urticaria [Unknown]
  - Quality of life decreased [Unknown]
  - Off label use [Unknown]
  - Tryptase increased [Unknown]

NARRATIVE: CASE EVENT DATE: 20231117
